FAERS Safety Report 19964056 (Version 2)
Quarter: 2021Q4

REPORT INFORMATION
  Report Type: Report from Study
  Country: ZA (occurrence: ZA)
  Receive Date: 20211018
  Receipt Date: 20211102
  Transmission Date: 20220303
  Serious: Yes (Congenital Anomaly, Other)
  Sender: FDA-Public Use
  Company Number: ZA-GILEAD-2021-0552643

PATIENT
  Sex: Male

DRUGS (11)
  1. EMTRICITABINE\TENOFOVIR DISOPROXIL FUMARATE [Suspect]
     Active Substance: EMTRICITABINE\TENOFOVIR DISOPROXIL FUMARATE
     Indication: HIV infection
     Dosage: UNK
     Route: 064
     Dates: start: 2015
  2. BEDAQUILINE [Concomitant]
     Active Substance: BEDAQUILINE
  3. EFAVIRENZ [Concomitant]
     Active Substance: EFAVIRENZ
  4. ISONIAZID [Concomitant]
     Active Substance: ISONIAZID
  5. TERIZIDONE [Concomitant]
     Active Substance: TERIZIDONE
  6. KANAMYCIN [Concomitant]
     Active Substance: KANAMYCIN A SULFATE
  7. CAPREOMYCIN [Concomitant]
     Active Substance: CAPREOMYCIN
  8. MOXY DAY [Concomitant]
  9. PYRAZINAMIDE [Concomitant]
     Active Substance: PYRAZINAMIDE
  10. ETHAMBUTOL [Concomitant]
     Active Substance: ETHAMBUTOL HYDROCHLORIDE
  11. PARA-AMINOSALICYLIC ACID [Concomitant]
     Active Substance: AMINOSALICYLIC ACID

REACTIONS (2)
  - Ehlers-Danlos syndrome [Unknown]
  - Foetal exposure during pregnancy [Recovered/Resolved]
